FAERS Safety Report 6070253-5 (Version None)
Quarter: 2009Q1

REPORT INFORMATION
  Report Type: 
  Country: None (occurrence: None)
  Receive Date: 20090209
  Receipt Date: 20090127
  Transmission Date: 20090719
  Serious: Yes (Hospitalization, Other)
  Sender: FDA-Public Use
  Company Number: US-ROCHE-611177

PATIENT
  Sex: Female
  Weight: 74.8 kg

DRUGS (1)
  1. CAPECITABINE [Suspect]
     Indication: BREAST CANCER
     Dosage: DOSE: 4 TABS DAILY
     Route: 065
     Dates: start: 20080101

REACTIONS (5)
  - BRONCHITIS [None]
  - CAST APPLICATION [None]
  - FALL [None]
  - PARAESTHESIA [None]
  - PLANTAR ERYTHEMA [None]
